FAERS Safety Report 8790985 (Version 1)
Quarter: 2012Q4

REPORT INFORMATION
  Report Type: Spontaneous
  Country: US (occurrence: None)
  Receive Date: 20120910
  Receipt Date: 20120910
  Transmission Date: 20130627
  Serious: Yes (Other)
  Sender: FDA-Public Use
  Company Number: US-GDP-12414932

PATIENT
  Age: 3 Month
  Sex: Male

DRUGS (1)
  1. CLOBETASOL PROPIONATE [Suspect]
     Indication: DERMATITIS DIAPER
     Route: 061

REACTIONS (7)
  - Cushing^s syndrome [None]
  - Rash [None]
  - Hypertension [None]
  - No therapeutic response [None]
  - Application site erosion [None]
  - Failure to thrive [None]
  - Adrenal suppression [None]
